FAERS Safety Report 8615981-X (Version None)
Quarter: 2012Q3

REPORT INFORMATION
  Report Type: 
  Country: None (occurrence: None)
  Receive Date: 20120823
  Receipt Date: 20120815
  Transmission Date: 20120928
  Serious: Yes (Hospitalization, Other)
  Sender: FDA-Public Use
  Company Number: GXBR2011US00580

PATIENT
  Sex: Male
  Weight: 90.703 kg

DRUGS (4)
  1. METOPROLOL TARTRATE [Suspect]
     Dosage: 25 MG, QD
     Dates: start: 20081001, end: 20081201
  2. LISINOPRIL [Concomitant]
     Indication: HYPERTENSION
     Dosage: UNK DF, UNK
     Dates: start: 20070101
  3. METOPROLOL TARTRATE [Suspect]
     Indication: HYPERTENSION
     Dosage: 50 MG, QD
     Dates: start: 20070101, end: 20081001
  4. METOPROLOL TARTRATE [Suspect]
     Dosage: 12.5 MG, QD
     Dates: start: 20081201, end: 20090501

REACTIONS (9)
  - ARTERIOVENOUS MALFORMATION [None]
  - HYPOTENSION [None]
  - SLEEP APNOEA SYNDROME [None]
  - INSOMNIA [None]
  - CEREBROVASCULAR ACCIDENT [None]
  - BRADYCARDIA [None]
  - FATIGUE [None]
  - MALAISE [None]
  - MEMORY IMPAIRMENT [None]
